FAERS Safety Report 6019882-5 (Version None)
Quarter: 2008Q4

REPORT INFORMATION
  Report Type: 
  Country: None (occurrence: None)
  Receive Date: 20081222
  Receipt Date: 20081210
  Transmission Date: 20090506
  Serious: Yes (Disabling, Other)
  Sender: FDA-Public Use
  Company Number: 232240K08USA

PATIENT
  Age: 56 Year
  Sex: Female
  Weight: 62 kg

DRUGS (8)
  1. REBIF [Suspect]
     Indication: MULTIPLE SCLEROSIS
     Dosage: 44 MCG, 3 IN 1 WEEKS, SUBCUTANEOUS
     Route: 058
     Dates: start: 20050701, end: 20070801
  2. QUINAPRIL HCL [Concomitant]
  3. TOPAMAX [Concomitant]
  4. PAXIL [Concomitant]
  5. AMBIEN [Concomitant]
  6. GINSENG (GINSENG) [Concomitant]
  7. ZOLOFT [Concomitant]
  8. PROVIGIL [Concomitant]

REACTIONS (5)
  - AFFECTIVE DISORDER [None]
  - HAEMODIALYSIS [None]
  - HYPERTENSION [None]
  - PAIN [None]
  - RENAL FAILURE ACUTE [None]
